FAERS Safety Report 9862457 (Version 1)
Quarter: 2014Q1

REPORT INFORMATION
  Report Type: Spontaneous
  Country: US (occurrence: US)
  Receive Date: 20140203
  Receipt Date: 20140203
  Transmission Date: 20141002
  Serious: No
  Sender: FDA-Public Use
  Company Number: US-009507513-1402USA000179

PATIENT
  Sex: Female

DRUGS (2)
  1. MIRALAX [Suspect]
     Indication: CONSTIPATION PROPHYLAXIS
     Dosage: 17 G, QD
     Route: 048
     Dates: start: 201401
  2. COLACE [Suspect]
     Indication: CONSTIPATION PROPHYLAXIS
     Dosage: 2 DF, UNKNOWN

REACTIONS (1)
  - Diarrhoea [Unknown]
